FAERS Safety Report 21037570 (Version 1)
Quarter: 2022Q3

REPORT INFORMATION
  Report Type: Spontaneous
  Country: TW (occurrence: TW)
  Receive Date: 20220704
  Receipt Date: 20220704
  Transmission Date: 20221027
  Serious: Yes (Other)
  Sender: FDA-Public Use
  Company Number: TW-AMGEN-TWNSP2022111574

PATIENT

DRUGS (1)
  1. XGEVA [Suspect]
     Active Substance: DENOSUMAB
     Indication: Metastases to bone
     Route: 065

REACTIONS (18)
  - Cataract [Unknown]
  - Cardiac failure congestive [Unknown]
  - Dementia [Unknown]
  - Diabetes mellitus [Unknown]
  - Glaucoma [Unknown]
  - Myocardial ischaemia [Unknown]
  - Macular degeneration [Unknown]
  - Parkinson^s disease [Unknown]
  - Renal failure [Unknown]
  - Pneumonia [Unknown]
  - Cerebrovascular disorder [Unknown]
  - Chronic obstructive pulmonary disease [Unknown]
  - Depression [Unknown]
  - Dyslipidaemia [Unknown]
  - Hypertension [Unknown]
  - Liver disorder [Unknown]
  - Osteoarthritis [Unknown]
  - Osteoporosis [Unknown]
